FAERS Safety Report 24913167 (Version 1)
Quarter: 2025Q1

REPORT INFORMATION
  Report Type: Spontaneous
  Country: PL (occurrence: PL)
  Receive Date: 20250201
  Receipt Date: 20250201
  Transmission Date: 20250409
  Serious: Yes (Other)
  Sender: ROCHE
  Company Number: None

PATIENT
  Age: 82 Year
  Sex: Female
  Weight: 46 kg

DRUGS (5)
  1. ZELBORAF [Suspect]
     Active Substance: VEMURAFENIB
     Indication: Malignant melanoma
     Dosage: 4 X 240 MG 2/DAY, EVERY 28 DAYS
     Route: 048
     Dates: start: 20200508, end: 20200605
  2. ZELBORAF [Suspect]
     Active Substance: VEMURAFENIB
     Dosage: 3 X 240 MG 2/DAY, EVERY 28 DAYS
     Route: 048
     Dates: start: 20200605
  3. COTELLIC [Suspect]
     Active Substance: COBIMETINIB FUMARATE
     Indication: Malignant melanoma
     Dosage: 3 X 20 MG 1/DAY, EVERY 28 DAYS
     Route: 048
     Dates: start: 20200508, end: 20200605
  4. COTELLIC [Suspect]
     Active Substance: COBIMETINIB FUMARATE
     Dosage: 2 X 20 MG 1/DAY, EVERY 28 DAYS
     Route: 048
     Dates: start: 20200605, end: 20200703
  5. COTELLIC [Suspect]
     Active Substance: COBIMETINIB FUMARATE
     Dosage: 2 X 20 MG 1/DAY, EVERY 28 DAYS
     Route: 048
     Dates: start: 20200703

REACTIONS (2)
  - Erythema [Recovering/Resolving]
  - Panniculitis [Recovering/Resolving]

NARRATIVE: CASE EVENT DATE: 20200605
